FAERS Safety Report 7361423-4 (Version None)
Quarter: 2011Q1

REPORT INFORMATION
  Report Type: 
  Country: None (occurrence: None)
  Receive Date: 20110310
  Receipt Date: 20110225
  Transmission Date: 20110831
  Serious: Yes (Hospitalization)
  Sender: FDA-Public Use
  Company Number: 005382

PATIENT
  Sex: Female
  Weight: 75.9 kg

DRUGS (9)
  1. APO-INDOMETHACIN [Concomitant]
  2. MULTI-VITAMINS [Concomitant]
  3. CERTOLIZUMAB PEGOL [Suspect]
     Indication: RHEUMATOID ARTHRITIS
     Dosage: (SUBCUTANEOUS)
     Route: 058
     Dates: start: 20090826, end: 20091007
  4. FOLIC ACID [Concomitant]
  5. METHOTREXATE [Concomitant]
  6. CALCIUM [Concomitant]
  7. REFRESH LIQUIGEL /00007001/ [Concomitant]
  8. APAP TAB [Concomitant]
  9. TRAMADOL [Concomitant]

REACTIONS (8)
  - BLOOD LACTIC ACID INCREASED [None]
  - HEART RATE INCREASED [None]
  - SINUS BRADYCARDIA [None]
  - DRUG HYPERSENSITIVITY [None]
  - EAR LOBE INFECTION [None]
  - BLOOD PRESSURE DECREASED [None]
  - CELLULITIS [None]
  - INFLUENZA [None]
